FAERS Safety Report 16306040 (Version 2)
Quarter: 2020Q4

REPORT INFORMATION
  Report Type: Spontaneous
  Country: US (occurrence: US)
  Receive Date: 20190513
  Receipt Date: 20201225
  Transmission Date: 20210113
  Serious: Yes (Hospitalization, Other)
  Sender: FDA-Public Use
  Company Number: US-ASTRAZENECA-2019SE66075

PATIENT
  Age: 25780 Day
  Sex: Female
  Weight: 69.9 kg

DRUGS (34)
  1. NEXIUM [Suspect]
     Active Substance: ESOMEPRAZOLE MAGNESIUM
     Indication: GASTROOESOPHAGEAL REFLUX DISEASE
     Route: 048
     Dates: start: 200803, end: 201811
  2. PLAQUENIL [Concomitant]
     Active Substance: HYDROXYCHLOROQUINE SULFATE
  3. DRISDOL [Concomitant]
     Active Substance: ERGOCALCIFEROL
  4. AZITHROMYCIN ANHYDROUS. [Concomitant]
     Active Substance: AZITHROMYCIN ANHYDROUS
  5. MYCOPHENOLATE MOFETIL. [Concomitant]
     Active Substance: MYCOPHENOLATE MOFETIL
  6. BRIMONIDINE TARTRATE. [Concomitant]
     Active Substance: BRIMONIDINE TARTRATE
  7. LISINOPRIL. [Concomitant]
     Active Substance: LISINOPRIL
     Indication: VASODILATATION
     Dates: start: 200908, end: 201805
  8. MULTIVITAMINS [Concomitant]
     Active Substance: VITAMINS
  9. CARAFATE [Concomitant]
     Active Substance: SUCRALFATE
  10. PREDNISONE. [Concomitant]
     Active Substance: PREDNISONE
  11. ADVIL [Concomitant]
     Active Substance: IBUPROFEN
     Indication: INFLAMMATION
  12. ADVIL [Concomitant]
     Active Substance: IBUPROFEN
     Indication: PAIN
  13. VITAMIN D [Concomitant]
     Active Substance: VITAMIN D NOS
     Indication: CALCIUM DEFICIENCY
     Dates: start: 200908
  14. TRAMADOL. [Concomitant]
     Active Substance: TRAMADOL
     Indication: PAIN
     Dates: start: 2010, end: 2013
  15. NIFEDIPINE. [Concomitant]
     Active Substance: NIFEDIPINE
  16. HYDROQUINONE. [Concomitant]
     Active Substance: HYDROQUINONE
  17. TRIAMCINOLONE [Concomitant]
     Active Substance: TRIAMCINOLONE
  18. PROTONIX [Suspect]
     Active Substance: PANTOPRAZOLE SODIUM
     Indication: GASTROOESOPHAGEAL REFLUX DISEASE
     Route: 065
     Dates: start: 201812, end: 2020
  19. ALENDRONATE [Concomitant]
     Active Substance: ALENDRONATE SODIUM
  20. TEMAZEPAM. [Concomitant]
     Active Substance: TEMAZEPAM
  21. TIMOLOL. [Concomitant]
     Active Substance: TIMOLOL
  22. NEXIUM [Suspect]
     Active Substance: ESOMEPRAZOLE MAGNESIUM
     Indication: GASTROOESOPHAGEAL REFLUX DISEASE
     Dosage: GENERIC
     Route: 065
     Dates: start: 20160322
  23. AMOXICILLIN. [Concomitant]
     Active Substance: AMOXICILLIN
  24. LOSARTAN. [Concomitant]
     Active Substance: LOSARTAN
  25. FUROSEMIDE. [Concomitant]
     Active Substance: FUROSEMIDE
     Indication: HYPERTENSION
     Dates: start: 201101
  26. FOSAMAX [Concomitant]
     Active Substance: ALENDRONATE SODIUM
  27. K-DUR [Concomitant]
     Active Substance: POTASSIUM CHLORIDE
  28. NEXIUM [Suspect]
     Active Substance: ESOMEPRAZOLE MAGNESIUM
     Indication: GASTROOESOPHAGEAL REFLUX DISEASE
     Route: 048
     Dates: start: 200908, end: 201812
  29. NISOLDIPINE. [Concomitant]
     Active Substance: NISOLDIPINE
     Indication: HYPERTENSION
     Dates: start: 201511, end: 201709
  30. COZAAR [Concomitant]
     Active Substance: LOSARTAN POTASSIUM
     Indication: BLOOD PRESSURE ABNORMAL
     Dates: start: 200908
  31. SULAR [Concomitant]
     Active Substance: NISOLDIPINE
     Indication: BLOOD PRESSURE ABNORMAL
     Dates: start: 200908
  32. MECLIZINE [Concomitant]
     Active Substance: MECLIZINE HYDROCHLORIDE
  33. NYSTATIN. [Concomitant]
     Active Substance: NYSTATIN
  34. CIPROFLOXACIN. [Concomitant]
     Active Substance: CIPROFLOXACIN

REACTIONS (8)
  - Renal failure [Unknown]
  - End stage renal disease [Unknown]
  - Nephritis [Unknown]
  - Gastrooesophageal reflux disease [Not Recovered/Not Resolved]
  - Kidney fibrosis [Unknown]
  - Acute kidney injury [Unknown]
  - Nephrogenic anaemia [Unknown]
  - Chronic kidney disease [Not Recovered/Not Resolved]

NARRATIVE: CASE EVENT DATE: 20181112
